FAERS Safety Report 7356673-7 (Version None)
Quarter: 2011Q1

REPORT INFORMATION
  Report Type: 
  Country: None (occurrence: None)
  Receive Date: 20110316
  Receipt Date: 20110310
  Transmission Date: 20110831
  Serious: Yes (Death, Hospitalization, Disabling, Other)
  Sender: FDA-Public Use
  Company Number: PHHO2011FR03160

PATIENT
  Sex: Male
  Weight: 77 kg

DRUGS (1)
  1. AFINITOR [Suspect]
     Indication: METASTATIC RENAL CELL CARCINOMA
     Dosage: 10 MG, QD
     Route: 048
     Dates: start: 20110106, end: 20110214

REACTIONS (15)
  - RESPIRATORY DISTRESS [None]
  - PLEURAL EFFUSION [None]
  - DYSPNOEA [None]
  - RESTRICTIVE PULMONARY DISEASE [None]
  - PNEUMONITIS [None]
  - PYREXIA [None]
  - ATELECTASIS [None]
  - WEGENER'S GRANULOMATOSIS [None]
  - ASPIRATION PLEURAL CAVITY [None]
  - GENERAL PHYSICAL HEALTH DETERIORATION [None]
  - PNEUMONIA STAPHYLOCOCCAL [None]
  - ASTHENIA [None]
  - INFLAMMATION [None]
  - ACUTE RESPIRATORY FAILURE [None]
  - METAPLASIA [None]
